FAERS Safety Report 4992455-9 (Version None)
Quarter: 2006Q1

REPORT INFORMATION
  Report Type: 
  Country: None (occurrence: None)
  Receive Date: 20060314
  Receipt Date: 20051117
  Transmission Date: 20060701
  Serious: Yes (Hospitalization)
  Sender: FDA-Public Use
  Company Number: 2005-02404

PATIENT
  Age: 64 Year
  Sex: Male
  Weight: 117.1 kg

DRUGS (3)
  1. VELCADE [Suspect]
     Indication: MULTIPLE MYELOMA
     Dates: start: 20050831
  2. THALOMID (THALIDOMIDE) CAPSULE, 50MG [Suspect]
     Indication: MULTIPLE MYELOMA
     Dosage: 100.00 MG, QD, ORAL
     Route: 048
     Dates: start: 20050915, end: 20050919
  3. DECADRON SRC [Concomitant]

REACTIONS (2)
  - DIPLOPIA [None]
  - LIVER FUNCTION TEST ABNORMAL [None]
